FAERS Safety Report 18312920 (Version 1)
Quarter: 2020Q3

REPORT INFORMATION
  Report Type: Spontaneous
  Country: US (occurrence: US)
  Receive Date: 20200925
  Receipt Date: 20200925
  Transmission Date: 20201103
  Serious: No
  Sender: FDA-Public Use
  Company Number: None

PATIENT
  Age: 87 Year
  Sex: Male
  Weight: 80.3 kg

DRUGS (22)
  1. ETOMIDATE. [Concomitant]
     Active Substance: ETOMIDATE
     Dates: start: 20200919, end: 20200919
  2. ASPIRIN. [Concomitant]
     Active Substance: ASPIRIN
     Dates: start: 20200917, end: 20200925
  3. ATENOLOL. [Concomitant]
     Active Substance: ATENOLOL
     Dates: start: 20200917, end: 20200923
  4. ALBUMIN [Concomitant]
     Active Substance: ALBUMIN HUMAN
     Dates: start: 20200925, end: 20200925
  5. COLCHICINE. [Concomitant]
     Active Substance: COLCHICINE
     Dates: start: 20200917, end: 20200925
  6. ZINC GLUCONATE [Concomitant]
     Active Substance: ZINC GLUCONATE
     Dates: start: 20200917, end: 20200925
  7. VITAMIN C [Concomitant]
     Active Substance: ASCORBIC ACID
     Dates: start: 20200917, end: 20200923
  8. FUROSEMIDE. [Concomitant]
     Active Substance: FUROSEMIDE
     Dates: start: 20200923, end: 20200923
  9. LACTULOSE. [Concomitant]
     Active Substance: LACTULOSE
     Dates: start: 20200924, end: 20200925
  10. MIDODRINE [Concomitant]
     Active Substance: MIDODRINE
     Dates: start: 20200924, end: 20200925
  11. ENOXAPARIN [Concomitant]
     Active Substance: ENOXAPARIN
     Dates: start: 20200916, end: 20200925
  12. ATORVASTATIN [Concomitant]
     Active Substance: ATORVASTATIN
     Dates: start: 20200917, end: 20200925
  13. INSULIN LISPRO [Concomitant]
     Active Substance: INSULIN LISPRO
     Dates: start: 20200916, end: 20200925
  14. INSULIN GLARGINE [Concomitant]
     Active Substance: INSULIN GLARGINE
     Dates: start: 20200925, end: 20200925
  15. REMDESIVIR. [Suspect]
     Active Substance: REMDESIVIR
     Indication: COVID-19
     Route: 040
     Dates: start: 20200917, end: 20200925
  16. AZITHROMYCIN ANHYDROUS. [Concomitant]
     Active Substance: AZITHROMYCIN ANHYDROUS
     Dates: start: 20200916, end: 20200919
  17. AMPICILLIN/SULBACTAM [Concomitant]
     Active Substance: AMPICILLIN SODIUM\SULBACTAM SODIUM
     Dates: start: 20200917, end: 20200922
  18. CALCIUM GLUCONATE. [Concomitant]
     Active Substance: CALCIUM GLUCONATE
     Dates: start: 20200924, end: 20200925
  19. DEXAMETHASONE. [Concomitant]
     Active Substance: DEXAMETHASONE
     Dates: start: 20200916, end: 20200925
  20. DIGOXIN. [Concomitant]
     Active Substance: DIGOXIN
     Dates: start: 20200924, end: 20200924
  21. PANTOPRAZOLE [Concomitant]
     Active Substance: PANTOPRAZOLE
     Dates: start: 20200915, end: 20200925
  22. THEOPHYLLINE [Concomitant]
     Active Substance: THEOPHYLLINE ANHYDROUS
     Dates: start: 20200917, end: 20200925

REACTIONS (1)
  - Liver function test increased [None]

NARRATIVE: CASE EVENT DATE: 20200925
